FAERS Safety Report 20664154 (Version 1)
Quarter: 2022Q2

REPORT INFORMATION
  Report Type: Spontaneous
  Country: FR (occurrence: FR)
  Receive Date: 20220401
  Receipt Date: 20220401
  Transmission Date: 20220720
  Serious: Yes (Other)
  Sender: FDA-Public Use
  Company Number: None

PATIENT
  Age: 23 Year
  Sex: Male
  Weight: 69 kg

DRUGS (9)
  1. DOXORUBICIN [Suspect]
     Active Substance: DOXORUBICIN
     Indication: Hodgkin^s disease nodular sclerosis stage II
     Dosage: STRENGTH 200 MG/100 ML, 68MG, FREQUENCY TIME 15DAYS
     Route: 042
     Dates: start: 20220121
  2. BLEOMYCIN SULFATE [Suspect]
     Active Substance: BLEOMYCIN SULFATE
     Indication: Hodgkin^s disease nodular sclerosis stage II
     Dosage: 15MG, FREQUENCY TIME 15DAYS, DURATION 1MONTHS
     Route: 042
     Dates: start: 20220128, end: 202202
  3. BACTRIM [Suspect]
     Active Substance: SULFAMETHOXAZOLE\TRIMETHOPRIM
     Indication: Antibiotic prophylaxis
     Dosage: 800MG,DURATION 7DAYS, FREQUENCY TIME 72HOURS
     Route: 048
     Dates: start: 20220121, end: 20220128
  4. ETOPOPHOS [Suspect]
     Active Substance: ETOPOSIDE PHOSPHATE
     Indication: Hodgkin^s disease nodular sclerosis stage II
     Dosage: ETOPOPHOS 100 MG, LYOPHILISATE FOR PARENTERAL USE, DURATION 1MONTHS, FREQUENCY TIME15 DAYS, UNIT DOS
     Route: 042
     Dates: start: 20220121, end: 202202
  5. VALACYCLOVIR HYDROCHLORIDE [Suspect]
     Active Substance: VALACYCLOVIR HYDROCHLORIDE
     Indication: Antiviral prophylaxis
     Dosage: 500MG, FREQUENCY TIME 1DAYS
     Route: 048
     Dates: start: 20220121
  6. VINCRISTINE [Suspect]
     Active Substance: VINCRISTINE
     Indication: Hodgkin^s disease nodular sclerosis stage II
     Dosage: 2MG, DURATION 1MONTHS, FREQUENCY TIME 15DAYS
     Route: 042
     Dates: start: 20220128, end: 202202
  7. DACARBAZINE [Suspect]
     Active Substance: DACARBAZINE
     Indication: Hodgkin^s disease nodular sclerosis stage II
     Dosage: 960MG, FREQUENCY TIME 15DAYS
     Route: 042
     Dates: start: 20220121
  8. PREDNISONE [Suspect]
     Active Substance: PREDNISONE
     Indication: Hodgkin^s disease nodular sclerosis stage II
     Dosage: FREQUENCY TIME 1DAYS, DURATION 1MONTHS, 80MG
     Route: 048
     Dates: start: 20220121, end: 202202
  9. CYCLOPHOSPHAMIDE [Suspect]
     Active Substance: CYCLOPHOSPHAMIDE
     Indication: Hodgkin^s disease nodular sclerosis stage II
     Dosage: STRENGTH: 1000 MG, POWDER FOR SOLUTION FOR INJECTION OR INFUSION, 2300MG,DURATION 1MONTHS,FREQUENCY
     Route: 042
     Dates: start: 20220121, end: 202202

REACTIONS (1)
  - Mixed liver injury [Recovering/Resolving]

NARRATIVE: CASE EVENT DATE: 20220128
